FAERS Safety Report 6530571-0 (Version None)
Quarter: 2010Q1

REPORT INFORMATION
  Report Type: 
  Country: None (occurrence: None)
  Receive Date: 20100106
  Receipt Date: 20100106
  Transmission Date: 20100710
  Serious: Yes (Death, Hospitalization)
  Sender: FDA-Public Use
  Company Number: None

PATIENT
  Sex: Female
  Weight: 55 kg

DRUGS (2)
  1. CARBOPLATIN [Suspect]
     Dosage: 576 MG
     Dates: end: 20060511
  2. TAXOL [Suspect]
     Dosage: 290 MG
     Dates: end: 20060511

REACTIONS (5)
  - DEPRESSED LEVEL OF CONSCIOUSNESS [None]
  - DEVICE RELATED INFECTION [None]
  - HYPOTENSION [None]
  - INTESTINAL OBSTRUCTION [None]
  - WHITE BLOOD CELL COUNT DECREASED [None]
